FAERS Safety Report 15939576 (Version 2)
Quarter: 2019Q2

REPORT INFORMATION
  Report Type: Spontaneous
  Country: US (occurrence: US)
  Receive Date: 20190208
  Receipt Date: 20190620
  Transmission Date: 20190711
  Serious: Yes (Other)
  Sender: FDA-Public Use
  Company Number: US-ASTRAZENECA-2019SE11881

PATIENT
  Age: 23388 Day
  Sex: Female

DRUGS (31)
  1. ISOSORBIDE. [Concomitant]
     Active Substance: ISOSORBIDE
  2. SIMVASTATIN. [Concomitant]
     Active Substance: SIMVASTATIN
  3. HUMALOG [Concomitant]
     Active Substance: INSULIN LISPRO
  4. SEVELAMER [Concomitant]
     Active Substance: SEVELAMER
  5. ATORVASTATIN [Concomitant]
     Active Substance: ATORVASTATIN
  6. VERAPAMIL [Concomitant]
     Active Substance: VERAPAMIL HYDROCHLORIDE
  7. ATENOLOL. [Concomitant]
     Active Substance: ATENOLOL
  8. CARVEDILOL. [Concomitant]
     Active Substance: CARVEDILOL
  9. NITROGLYCERIN. [Concomitant]
     Active Substance: NITROGLYCERIN
  10. LEVOTHYROXINE. [Concomitant]
     Active Substance: LEVOTHYROXINE
  11. BUDESONIDE. [Concomitant]
     Active Substance: BUDESONIDE
  12. FLUTICASONE. [Concomitant]
     Active Substance: FLUTICASONE
  13. HYDROCORTISONE. [Concomitant]
     Active Substance: HYDROCORTISONE
  14. PRILOSEC [Suspect]
     Active Substance: OMEPRAZOLE MAGNESIUM
     Route: 048
     Dates: start: 1995
  15. AMLODIPINE [Concomitant]
     Active Substance: AMLODIPINE BESYLATE
  16. LEVOTHYROXINE. [Concomitant]
     Active Substance: LEVOTHYROXINE
  17. DIOVAN [Concomitant]
     Active Substance: VALSARTAN
  18. ISOSORBIDE MONONITRATE. [Concomitant]
     Active Substance: ISOSORBIDE MONONITRATE
  19. WARFARIN [Concomitant]
     Active Substance: WARFARIN
  20. FUROSEMIDE. [Concomitant]
     Active Substance: FUROSEMIDE
  21. LEVOTHYROXINE. [Concomitant]
     Active Substance: LEVOTHYROXINE
  22. PREVACID [Suspect]
     Active Substance: LANSOPRAZOLE
     Route: 065
     Dates: start: 19950101
  23. CLONIDINE. [Concomitant]
     Active Substance: CLONIDINE
  24. GABAPENTIN. [Concomitant]
     Active Substance: GABAPENTIN
  25. SERTRALINE [Concomitant]
     Active Substance: SERTRALINE HYDROCHLORIDE
  26. WARFARIN [Concomitant]
     Active Substance: WARFARIN
  27. FLOVENT [Concomitant]
     Active Substance: FLUTICASONE PROPIONATE
  28. ASPIRIN. [Concomitant]
     Active Substance: ASPIRIN
  29. COLACE [Concomitant]
     Active Substance: DOCUSATE SODIUM
  30. FUROSEMIDE. [Concomitant]
     Active Substance: FUROSEMIDE
  31. GUAIFENESIN. [Concomitant]
     Active Substance: GUAIFENESIN

REACTIONS (4)
  - Renal failure [Unknown]
  - Chronic kidney disease [Unknown]
  - Acute kidney injury [Unknown]
  - End stage renal disease [Unknown]

NARRATIVE: CASE EVENT DATE: 20110222
